FAERS Safety Report 24883045 (Version 4)
Quarter: 2025Q2

REPORT INFORMATION
  Report Type: Other
  Country: US (occurrence: US)
  Receive Date: 20250124
  Receipt Date: 20250630
  Transmission Date: 20250716
  Serious: No
  Sender: TRAVERE THERAPEUTICS
  Company Number: US-TRAVERE-2025TVT00046

PATIENT
  Age: 76 Year
  Sex: Male

DRUGS (3)
  1. FILSPARI [Suspect]
     Active Substance: SPARSENTAN
     Indication: IgA nephropathy
     Route: 048
     Dates: start: 20241105
  2. FILSPARI [Suspect]
     Active Substance: SPARSENTAN
     Indication: Nephritic syndrome
     Route: 048
     Dates: start: 20241118
  3. FILSPARI [Suspect]
     Active Substance: SPARSENTAN
     Dosage: 400MG TABLETS WAS BREAKING THEM IN HALF
     Route: 048

REACTIONS (5)
  - Bronchitis [Unknown]
  - Off label use [Unknown]
  - Hypotension [Unknown]
  - Weight decreased [Unknown]
  - Illness [Unknown]

NARRATIVE: CASE EVENT DATE: 20250201
